FAERS Safety Report 12894497 (Version 1)
Quarter: 2016Q4

REPORT INFORMATION
  Report Type: Spontaneous
  Country: GB (occurrence: GB)
  Receive Date: 20161028
  Receipt Date: 20161028
  Transmission Date: 20170207
  Serious: Yes (Death, Hospitalization)
  Sender: FDA-Public Use
  Company Number: GB-JNJFOC-20130301886

PATIENT
  Age: 57 Year
  Sex: Male

DRUGS (2)
  1. TRABECTEDIN [Suspect]
     Active Substance: TRABECTEDIN
     Indication: ANGIOSARCOMA METASTATIC
     Route: 065
     Dates: start: 20130226
  2. TRABECTEDIN [Suspect]
     Active Substance: TRABECTEDIN
     Route: 065

REACTIONS (3)
  - Expired product administered [Unknown]
  - Pneumonia [Fatal]
  - Angiosarcoma metastatic [Fatal]

NARRATIVE: CASE EVENT DATE: 20130227
